FAERS Safety Report 6169984-8 (Version None)
Quarter: 2009Q2

REPORT INFORMATION
  Report Type: 
  Country: None (occurrence: None)
  Receive Date: 20090428
  Receipt Date: 20090424
  Transmission Date: 20091009
  Serious: Yes (Hospitalization)
  Sender: FDA-Public Use
  Company Number: CA-WYE-G03550009

PATIENT
  Age: 51 Year
  Sex: Male
  Weight: 90 kg

DRUGS (18)
  1. TACROLIMUS [Suspect]
     Indication: IMMUNOSUPPRESSION
     Dosage: UNKNOWN
     Route: 048
     Dates: start: 20080715, end: 20090106
  2. TACROLIMUS [Suspect]
     Route: 048
     Dates: start: 20090107
  3. ATORVASTATIN [Concomitant]
     Indication: DYSLIPIDAEMIA
     Dosage: 80 MG EVERY
     Route: 048
     Dates: start: 20090106
  4. METOPROLOL [Concomitant]
     Indication: HYPERTENSION
     Dosage: 50 MG EVERY
     Route: 048
     Dates: start: 20081114
  5. PREDNISONE [Concomitant]
     Indication: PROPHYLAXIS AGAINST TRANSPLANT REJECTION
     Dosage: 12.5 MG EVERY
     Route: 048
     Dates: start: 20081212, end: 20090111
  6. PREDNISONE [Concomitant]
     Dosage: 60 MG EVERY
     Route: 048
     Dates: start: 20090112, end: 20090112
  7. PREDNISONE [Concomitant]
     Dosage: 30 MG EVERY
     Route: 048
     Dates: start: 20090113, end: 20090113
  8. PREDNISONE [Concomitant]
     Dosage: 12.5 MG EVERY
     Route: 048
     Dates: start: 20090114
  9. AMIODARONE HCL [Concomitant]
     Indication: VENTRICULAR ARRHYTHMIA
     Dosage: 300 MG EVERY
     Route: 048
     Dates: start: 20081201
  10. CARVEDILOL [Concomitant]
     Indication: CARDIOMYOPATHY
     Dosage: 12.5 MG EVERY
     Route: 048
     Dates: start: 20090114
  11. ASPIRIN [Concomitant]
     Indication: CORONARY ARTERY DISEASE
     Route: 048
     Dates: start: 19970101
  12. CINACALCET HYDROCHLORIDE [Concomitant]
     Indication: HYPERPARATHYROIDISM
     Dosage: 90 MG EVERY
     Route: 048
     Dates: start: 20090108
  13. ALLOPURINOL [Concomitant]
     Indication: GOUT
     Dosage: 100 MG EVERY
     Route: 048
     Dates: start: 20080101
  14. PANTOPRAZOLE SODIUM [Concomitant]
     Indication: PROPHYLAXIS
     Dosage: 40 MG EVERY
     Route: 048
     Dates: start: 20080815
  15. DIPHENHYDRAMINE HCL [Concomitant]
     Indication: PROPHYLAXIS
     Dosage: 25 MG EVERY
     Route: 048
     Dates: start: 20090112, end: 20090113
  16. PLAVIX [Concomitant]
     Indication: PROPHYLAXIS
     Dosage: 75 MG EVERY
     Route: 048
     Dates: start: 20090114
  17. CELLCEPT [Concomitant]
     Indication: PROPHYLAXIS AGAINST TRANSPLANT REJECTION
     Route: 048
     Dates: start: 20080807
  18. ACETYLCYSTEINE [Concomitant]
     Indication: PROPHYLAXIS
     Dosage: 300 MG EVERY
     Route: 048
     Dates: start: 20090112, end: 20090113

REACTIONS (1)
  - CORONARY ARTERY STENOSIS [None]
